FAERS Safety Report 4642797-1 (Version None)
Quarter: 2005Q2

REPORT INFORMATION
  Report Type: 
  Country: None (occurrence: None)
  Receive Date: 20050422
  Receipt Date: 20050406
  Transmission Date: 20051028
  Serious: Yes (Disabling)
  Sender: FDA-Public Use
  Company Number: NL-AMGEN-UK125704

PATIENT
  Sex: Female

DRUGS (8)
  1. KINERET [Suspect]
     Indication: RHEUMATOID ARTHRITIS
     Route: 058
     Dates: start: 20041211
  2. PLAQUENIL [Concomitant]
     Route: 065
  3. CELESTONE [Concomitant]
     Route: 065
  4. CELEBREX [Concomitant]
     Route: 065
  5. ATENOLOL [Concomitant]
     Route: 065
  6. HYDROCHLOROTHIAZIDE [Concomitant]
     Route: 065
  7. LOSEC [Concomitant]
     Route: 065
  8. ACTONEL [Concomitant]
     Route: 065

REACTIONS (2)
  - GROIN PAIN [None]
  - PAIN IN EXTREMITY [None]
